FAERS Safety Report 12730647 (Version 2)
Quarter: 2016Q3

REPORT INFORMATION
  Report Type: Report from Study
  Country: US (occurrence: US)
  Receive Date: 20160910
  Receipt Date: 20160915
  Transmission Date: 20161109
  Serious: Yes (Hospitalization, Other)
  Sender: FDA-Public Use
  Company Number: US-UCBSA-2016034259

PATIENT
  Age: 0 Year
  Sex: Male
  Weight: 3 kg

DRUGS (5)
  1. CAFFEINE. [Concomitant]
     Active Substance: CAFFEINE
     Indication: CAFFEINE CONSUMPTION
     Dosage: UNK
     Route: 064
     Dates: start: 20150924, end: 20160522
  2. VITAMIN D [Concomitant]
     Active Substance: CHOLECALCIFEROL
     Indication: PROPHYLAXIS
     Dosage: 1 DF, WEEKLY (QW)
     Route: 064
     Dates: start: 20160310, end: 20160407
  3. DHA [Concomitant]
     Active Substance: DIETARY SUPPLEMENT
     Indication: VITAMIN SUPPLEMENTATION
     Dosage: 1 DF, ONCE DAILY (QD)
     Route: 064
     Dates: start: 20150924, end: 20160522
  4. CERTOLIZUMAB PEGOL RA [Suspect]
     Active Substance: CERTOLIZUMAB PEGOL
     Indication: CROHN^S DISEASE
     Dosage: 400 MG, MONTHLY (QM)
     Route: 064
     Dates: start: 20150924, end: 20160522
  5. PRENATAL VITAMINS [Concomitant]
     Active Substance: VITAMINS
     Indication: PRODUCT USED FOR UNKNOWN INDICATION
     Dosage: 1 DF, ONCE DAILY (QD)
     Route: 064
     Dates: start: 20150924, end: 20160522

REACTIONS (2)
  - Foetal exposure during pregnancy [Unknown]
  - Viral infection [Unknown]

NARRATIVE: CASE EVENT DATE: 20150924
